FAERS Safety Report 5003010-9 (Version None)
Quarter: 2006Q2

REPORT INFORMATION
  Report Type: 
  Country: None (occurrence: None)
  Receive Date: 20060516
  Receipt Date: 20051123
  Transmission Date: 20061013
  Serious: Yes (Hospitalization)
  Sender: FDA-Public Use
  Company Number: US-MERCK-0511USA04053

PATIENT
  Age: 65 Year
  Sex: Female
  Weight: 72 kg

DRUGS (3)
  1. VIOXX [Suspect]
     Indication: ARTHRITIS
     Route: 048
     Dates: start: 20020524, end: 20031105
  2. ESTRADIOL [Concomitant]
     Route: 065
     Dates: end: 20031101
  3. AVALIDE [Concomitant]
     Route: 065
     Dates: end: 20031101

REACTIONS (7)
  - ACUTE CORONARY SYNDROME [None]
  - BLOOD CHOLESTEROL INCREASED [None]
  - BUNDLE BRANCH BLOCK LEFT [None]
  - CORONARY ARTERY DISEASE [None]
  - HYPOTENSION [None]
  - INJURY [None]
  - VENTRICULAR TACHYCARDIA [None]
